FAERS Safety Report 8329327-8 (Version None)
Quarter: 2012Q2

REPORT INFORMATION
  Report Type: 
  Country: None (occurrence: None)
  Receive Date: 20120502
  Receipt Date: 20110908
  Transmission Date: 20120825
  Serious: No
  Sender: FDA-Public Use
  Company Number: US-ASTRAZENECA-2011SE53863

PATIENT

DRUGS (2)
  1. FASLODEX [Suspect]
     Route: 030
  2. FASLODEX [Suspect]
     Route: 030

REACTIONS (3)
  - PAIN [None]
  - PYREXIA [None]
  - INAPPROPRIATE SCHEDULE OF DRUG ADMINISTRATION [None]
